FAERS Safety Report 11068348 (Version 1)
Quarter: 2015Q2

REPORT INFORMATION
  Report Type: Spontaneous
  Country: IT (occurrence: IT)
  Receive Date: 20150427
  Receipt Date: 20150427
  Transmission Date: 20150821
  Serious: Yes (Hospitalization)
  Sender: FDA-Public Use
  Company Number: IT-PFIZER INC-2015138341

PATIENT
  Age: 82 Year
  Sex: Female

DRUGS (3)
  1. CARVEDILOLO [Concomitant]
     Active Substance: CARVEDILOL
     Dosage: 1 DF, UNK
     Route: 048
  2. XANAX [Suspect]
     Active Substance: ALPRAZOLAM
     Dosage: 15 MG, UNK
     Route: 048
     Dates: start: 20140521, end: 20140521
  3. PRISMA /00390602/ [Concomitant]
     Dosage: 25 MG, UNK
     Route: 048

REACTIONS (4)
  - Speech disorder [Recovering/Resolving]
  - Disorientation [Recovering/Resolving]
  - Sopor [Recovering/Resolving]
  - Overdose [Recovering/Resolving]

NARRATIVE: CASE EVENT DATE: 20140522
